FAERS Safety Report 8507072-3 (Version None)
Quarter: 2012Q2

REPORT INFORMATION
  Report Type: 
  Country: None (occurrence: None)
  Receive Date: 20120603
  Receipt Date: 20120625
  Transmission Date: 20120825
  Serious: Yes (Hospitalization)
  Sender: FDA-Public Use
  Company Number: 2012SP035803

PATIENT
  Age: 50 Year
  Sex: Male

DRUGS (8)
  1. INTRON A [Suspect]
     Indication: HEPATITIS C
     Dates: start: 19990501, end: 20000101
  2. RIBAVIRIN [Suspect]
     Indication: PRODUCT USED FOR UNKNOWN INDICATION
  3. MEVACOR [Concomitant]
  4. TICLID [Concomitant]
  5. DILANTIN [Concomitant]
  6. ASPIRIN [Concomitant]
  7. TEGRETOL [Concomitant]
  8. ZANTAC [Concomitant]

REACTIONS (1)
  - ATRIAL FIBRILLATION [None]
